FAERS Safety Report 12673578 (Version 1)
Quarter: 2016Q3

REPORT INFORMATION
  Report Type: Report from Study
  Country: US (occurrence: US)
  Receive Date: 20160822
  Receipt Date: 20160822
  Transmission Date: 20161109
  Serious: Yes (Hospitalization, Other)
  Sender: FDA-Public Use
  Company Number: US-GILEAD-2016-0229825

PATIENT
  Age: 80 Year
  Sex: Female

DRUGS (13)
  1. MELOXICAM. [Concomitant]
     Active Substance: MELOXICAM
  2. GABAPENTIN. [Concomitant]
     Active Substance: GABAPENTIN
  3. DOCUSATE [Concomitant]
     Active Substance: DOCUSATE
  4. LEXAPRO [Concomitant]
     Active Substance: ESCITALOPRAM OXALATE
  5. METOPROLOL. [Concomitant]
     Active Substance: METOPROLOL
  6. ADVAIR HFA [Concomitant]
     Active Substance: FLUTICASONE PROPIONATE\SALMETEROL XINAFOATE
  7. NEXIUM [Concomitant]
     Active Substance: ESOMEPRAZOLE MAGNESIUM
  8. LASIX [Concomitant]
     Active Substance: FUROSEMIDE
  9. AMBRISENTAN [Suspect]
     Active Substance: AMBRISENTAN
     Indication: PULMONARY HYPERTENSION
     Dosage: 5 MG, QD
     Route: 065
     Dates: start: 20140619
  10. ASPIRIN                            /00002701/ [Concomitant]
     Active Substance: ASPIRIN
  11. CRESTOR [Concomitant]
     Active Substance: ROSUVASTATIN CALCIUM
  12. TRAZODONE [Concomitant]
     Active Substance: TRAZODONE HYDROCHLORIDE
  13. COUMADIN [Concomitant]
     Active Substance: WARFARIN SODIUM

REACTIONS (2)
  - Chest pain [Not Recovered/Not Resolved]
  - Lung neoplasm malignant [Not Recovered/Not Resolved]

NARRATIVE: CASE EVENT DATE: 20160805
